FAERS Safety Report 8937091 (Version 1)
Quarter: 2012Q4

REPORT INFORMATION
  Report Type: 
  Country: US (occurrence: US)
  Receive Date: 20121129
  Receipt Date: 20121129
  Transmission Date: 20130627
  Serious: Yes (Hospitalization, Other)
  Sender: FDA-Public Use
  Company Number: US-ASTELLAS-2012US011531

PATIENT
  Sex: Female

DRUGS (4)
  1. TARCEVA [Suspect]
     Indication: NON-SMALL CELL LUNG CANCER
     Dosage: 150 mg, UID/QD
     Route: 048
     Dates: start: 20041216, end: 20051006
  2. AVASTIN                            /01555201/ [Suspect]
     Indication: NON-SMALL CELL LUNG CANCER
     Dosage: 1050 mg, once in 3 weeks
     Route: 042
     Dates: start: 20120208
  3. TAXOL [Suspect]
     Indication: NON-SMALL CELL LUNG CANCER
     Dosage: UNK
     Route: 065
  4. CARBOPLATIN [Suspect]
     Indication: NON-SMALL CELL LUNG CANCER
     Dosage: UNK
     Route: 065

REACTIONS (3)
  - Drug intolerance [Unknown]
  - Malignant neoplasm progression [Unknown]
  - Diarrhoea [Unknown]
